FAERS Safety Report 6317314-0 (Version None)
Quarter: 2009Q3

REPORT INFORMATION
  Report Type: 
  Country: None (occurrence: None)
  Receive Date: 20090821
  Receipt Date: 20090812
  Transmission Date: 20100115
  Serious: Yes (Hospitalization)
  Sender: FDA-Public Use
  Company Number: US-BIOGENIDEC-2005BI007774

PATIENT
  Age: 50 Year
  Sex: Female

DRUGS (2)
  1. AVONEX [Suspect]
     Indication: MULTIPLE SCLEROSIS
     Route: 030
     Dates: start: 20010127, end: 20030101
  2. AVONEX [Suspect]
     Route: 030
     Dates: start: 20030101

REACTIONS (8)
  - DEVICE BREAKAGE [None]
  - FALL [None]
  - SPINAL DECOMPRESSION [None]
  - SPONDYLITIS [None]
  - TEMPERATURE INTOLERANCE [None]
  - ULNA FRACTURE [None]
  - UPPER LIMB FRACTURE [None]
  - WEIGHT INCREASED [None]
